FAERS Safety Report 13189425 (Version 1)
Quarter: 2017Q1

REPORT INFORMATION
  Report Type: Report from Study
  Country: CA (occurrence: CA)
  Receive Date: 20170206
  Receipt Date: 20170206
  Transmission Date: 20170428
  Serious: Yes (Hospitalization)
  Sender: FDA-Public Use
  Company Number: CA-AMGEN-CANSL2017005856

PATIENT
  Age: 79 Year
  Sex: Female
  Weight: 58.96 kg

DRUGS (9)
  1. IRBESARTAN. [Concomitant]
     Active Substance: IRBESARTAN
     Dosage: 150 MG, QD
  2. ESOMEPRAZOLE [Concomitant]
     Active Substance: ESOMEPRAZOLE
     Dosage: 40 MG, UNK
  3. ATENOLOL. [Concomitant]
     Active Substance: ATENOLOL
     Dosage: 50 MG, UNK
  4. PREGABALIN. [Concomitant]
     Active Substance: PREGABALIN
     Dosage: 50 MG  1 MORNING, 2 NIGHT
  5. DOCUSATE [Concomitant]
     Active Substance: DOCUSATE
     Dosage: 100 MG (2 TAB), UNK
  6. CENTRUM ADVANTAGE [Concomitant]
     Active Substance: VITAMINS
     Dosage: 1MORNING, 1 NIGHT
  7. PROLIA [Suspect]
     Active Substance: DENOSUMAB
     Indication: OSTEOPOROSIS POSTMENOPAUSAL
     Dosage: 60 MG, Q6MO
     Route: 058
     Dates: start: 201505
  8. NOVO-GESIC [Concomitant]
     Dosage: 500 UNK, UNK
  9. CALCIUM [Concomitant]
     Active Substance: CALCIUM
     Dosage: 500 UNK, UNK

REACTIONS (3)
  - Sepsis [Unknown]
  - Fall [Unknown]
  - Viral infection [Unknown]

NARRATIVE: CASE EVENT DATE: 2015
